FAERS Safety Report 9585479 (Version 1)
Quarter: 2013Q4

REPORT INFORMATION
  Report Type: Spontaneous
  Country: GB (occurrence: GB)
  Receive Date: 20131003
  Receipt Date: 20131003
  Transmission Date: 20140711
  Serious: Yes (Hospitalization, Other)
  Sender: FDA-Public Use
  Company Number: PHHY2013GB107291

PATIENT
  Age: 15 Year
  Sex: Female
  Weight: 49 kg

DRUGS (3)
  1. FLUOXETINE [Suspect]
     Indication: DEPRESSION
     Dosage: 10 MG
     Route: 048
  2. FLUOXETINE [Suspect]
     Dosage: 20 MG
     Route: 048
     Dates: end: 20130704
  3. MICROGYNON [Concomitant]
     Indication: MENORRHAGIA

REACTIONS (4)
  - Condition aggravated [Recovering/Resolving]
  - Hepatitis [Recovering/Resolving]
  - Nausea [Recovering/Resolving]
  - Vomiting [Recovering/Resolving]
